APPROVED DRUG PRODUCT: DELZICOL
Active Ingredient: MESALAMINE
Strength: 400MG
Dosage Form/Route: CAPSULE, DELAYED RELEASE;ORAL
Application: N204412 | Product #001
Applicant: ABBVIE INC
Approved: Feb 1, 2013 | RLD: Yes | RS: No | Type: DISCN